FAERS Safety Report 17195463 (Version 1)
Quarter: 2019Q4

REPORT INFORMATION
  Report Type: Spontaneous
  Country: US (occurrence: US)
  Receive Date: 20191202
  Receipt Date: 20191202
  Transmission Date: 20200122
  Serious: Yes (Hospitalization)
  Sender: FDA-Public Use
  Company Number: None

PATIENT
  Age: 74 Year
  Sex: Male
  Weight: 77.56 kg

DRUGS (1)
  1. DEUTETRABENAZINE [Suspect]
     Active Substance: DEUTETRABENAZINE
     Indication: PHARYNGITIS
     Route: 048
     Dates: start: 20190507, end: 20190813

REACTIONS (2)
  - Angioedema [None]
  - Pharyngitis [None]

NARRATIVE: CASE EVENT DATE: 20190809
